FAERS Safety Report 4731454-9 (Version None)
Quarter: 2005Q3

REPORT INFORMATION
  Report Type: 
  Country: None (occurrence: None)
  Receive Date: 20050802
  Receipt Date: 20050722
  Transmission Date: 20060218
  Serious: Yes (Other)
  Sender: FDA-Public Use
  Company Number: FRWYE854125JUL05

PATIENT
  Sex: Male
  Weight: 78 kg

DRUGS (8)
  1. ENBREL [Suspect]
     Indication: RHEUMATOID ARTHRITIS
     Route: 058
     Dates: start: 20040601
  2. CORTANCYL [Concomitant]
     Route: 048
     Dates: start: 20000101
  3. ACETYLSALICYLATE LYSINE [Concomitant]
  4. MOPRAL [Concomitant]
  5. DIFFU K [Concomitant]
  6. COLECALCIFEROL [Concomitant]
     Route: 048
  7. ACTONEL [Concomitant]
     Route: 048
  8. TAHOR [Concomitant]
     Route: 048

REACTIONS (5)
  - CEREBROVASCULAR ACCIDENT [None]
  - CERVICAL CORD COMPRESSION [None]
  - EXTENSOR PLANTAR RESPONSE [None]
  - FALL [None]
  - SPINAL CORD COMPRESSION [None]
